FAERS Safety Report 6952809-8 (Version None)
Quarter: 2010Q3

REPORT INFORMATION
  Report Type: 
  Country: None (occurrence: None)
  Receive Date: 20100829
  Receipt Date: 20100514
  Transmission Date: 20110219
  Serious: No
  Sender: FDA-Public Use
  Company Number: US-ABBOTT-10P-163-0645673-00

PATIENT
  Sex: Male
  Weight: 81.72 kg

DRUGS (8)
  1. NIASPAN [Suspect]
     Indication: CARDIAC DISORDER
     Dates: start: 20090101
  2. NIASPAN [Suspect]
  3. ASPIRIN [Concomitant]
     Indication: PROPHYLAXIS
  4. PLAVIX [Concomitant]
     Indication: MYOCARDIAL INFARCTION
  5. LISINOPRIL [Concomitant]
     Indication: CARDIAC DISORDER
  6. DIGOXIN [Concomitant]
     Indication: CARDIAC DISORDER
  7. PROTONIX [Concomitant]
     Indication: GASTROOESOPHAGEAL REFLUX DISEASE
  8. THYROID COMPOUND [Concomitant]
     Indication: HYPOTHYROIDISM

REACTIONS (3)
  - PAIN [None]
  - PARAESTHESIA [None]
  - PRURITUS GENERALISED [None]
